FAERS Safety Report 17073175 (Version 1)
Quarter: 2019Q4

REPORT INFORMATION
  Report Type: Not Available
  Country: US (occurrence: US)
  Receive Date: 20191125
  Receipt Date: 20191125
  Transmission Date: 20200122
  Serious: Yes (Hospitalization)
  Sender: FDA-Public Use
  Company Number: US-NEUROCRINE BIOSCIENCES INC.-2019NBI03461

PATIENT
  Sex: Male

DRUGS (9)
  1. KLONOPIN [Concomitant]
     Active Substance: CLONAZEPAM
  2. INGREZZA [Suspect]
     Active Substance: VALBENAZINE
     Indication: TARDIVE DYSKINESIA
     Route: 048
  3. BACLOFEN. [Concomitant]
     Active Substance: BACLOFEN
  4. VITAMIN D [Concomitant]
     Active Substance: VITAMIN D NOS
  5. COGENTIN [Concomitant]
     Active Substance: BENZTROPINE MESYLATE
  6. SEROQUEL [Concomitant]
     Active Substance: QUETIAPINE FUMARATE
  7. BENADRYL [Concomitant]
     Active Substance: DIPHENHYDRAMINE HYDROCHLORIDE
  8. ATENOLOL. [Concomitant]
     Active Substance: ATENOLOL
  9. ODEFSEY [Concomitant]
     Active Substance: EMTRICITABINE\RILPIVIRINE HYDROCHLORIDE\TENOFOVIR ALAFENAMIDE FUMARATE

REACTIONS (1)
  - Suicidal ideation [Unknown]
